FAERS Safety Report 9373375 (Version 2)
Quarter: 2013Q3

REPORT INFORMATION
  Report Type: Spontaneous
  Country: FR (occurrence: FR)
  Receive Date: 20130627
  Receipt Date: 20130813
  Transmission Date: 20140515
  Serious: Yes (Hospitalization)
  Sender: FDA-Public Use
  Company Number: FR-TEVA-415394ISR

PATIENT
  Age: 93 Year
  Sex: Female

DRUGS (5)
  1. FUROSEMIDE TEVA 40 MG [Suspect]
     Dosage: 40 MILLIGRAM DAILY; IN THE MORNING
     Route: 048
     Dates: end: 20130608
  2. OXYCONTIN [Concomitant]
     Indication: PAIN
     Dates: start: 201306
  3. EFFEXOR 75 MG [Concomitant]
     Dosage: 75 MILLIGRAM DAILY; LONG TERM THERAPY
  4. IMOVANE 7.5 MG [Concomitant]
     Dosage: 3.75 MILLIGRAM DAILY; LONG TERM THERAPY, ON EVENING
  5. MIANSERINE (UNKNOWN BRAND) [Concomitant]
     Dosage: 10 MILLIGRAM DAILY; ON EVENING

REACTIONS (2)
  - Dyspnoea [Recovered/Resolved]
  - Somnolence [Recovered/Resolved]
